FAERS Safety Report 19678364 (Version 1)
Quarter: 2021Q3

REPORT INFORMATION
  Report Type: Spontaneous
  Country: RO (occurrence: RO)
  Receive Date: 20210809
  Receipt Date: 20210809
  Transmission Date: 20211014
  Serious: Yes (Hospitalization, Other)
  Sender: FDA-Public Use
  Company Number: RO-UCBSA-2021037918

PATIENT
  Age: 3 Year
  Sex: Female

DRUGS (1)
  1. XYZAL [Suspect]
     Active Substance: LEVOCETIRIZINE DIHYDROCHLORIDE
     Indication: URTICARIA
     Dosage: 10 DROPS TWICE A DAY
     Route: 048
     Dates: start: 20210725, end: 20210728

REACTIONS (5)
  - Tachycardia [Unknown]
  - Overdose [Unknown]
  - Myalgia [Recovered/Resolved]
  - Arthralgia [Unknown]
  - Clostridium difficile infection [Unknown]

NARRATIVE: CASE EVENT DATE: 202107
